FAERS Safety Report 5101921-7 (Version None)
Quarter: 2006Q3

REPORT INFORMATION
  Report Type: 
  Country: None (occurrence: None)
  Receive Date: 20060907
  Receipt Date: 20060823
  Transmission Date: 20061208
  Serious: Yes (Death, Hospitalization)
  Sender: FDA-Public Use
  Company Number: 2006001483

PATIENT
  Age: 64 Year
  Sex: Female

DRUGS (17)
  1. TARCEVA [Suspect]
     Indication: NON-SMALL CELL LUNG CANCER
     Dosage: 150 MG (QD), ORAL
     Route: 048
     Dates: start: 20060607
  2. ELAVIL [Concomitant]
  3. PRILOSEC [Concomitant]
  4. THEOPHYLLINE [Concomitant]
  5. VERAPAMIL [Concomitant]
  6. ZETIA [Concomitant]
  7. EZETIMIBE [Concomitant]
  8. TRIAMTERENE (TRIAMTERENE) [Concomitant]
  9. QUINAPRIL HCL [Concomitant]
  10. CLONAZEPAM [Concomitant]
  11. ACTONEL [Concomitant]
  12. CATAFLAM (DOCLOFENAC SODIUM) [Concomitant]
  13. ADVAIR DISKUS 100/50 [Concomitant]
  14. ALBUTEROL [Concomitant]
  15. SPIRIVA [Concomitant]
  16. OXYCONTIN [Concomitant]
  17. OXYCODONE HCL [Concomitant]

REACTIONS (7)
  - ADVERSE DRUG REACTION [None]
  - DYSPNOEA [None]
  - HEPATIC FAILURE [None]
  - LUNG DISORDER [None]
  - MULTI-ORGAN FAILURE [None]
  - PNEUMONITIS [None]
  - RESPIRATORY FAILURE [None]
